FAERS Safety Report 4742453-5 (Version None)
Quarter: 2005Q3

REPORT INFORMATION
  Report Type: 
  Country: None (occurrence: None)
  Receive Date: 20050811
  Receipt Date: 20050531
  Transmission Date: 20060218
  Serious: Yes (Hospitalization)
  Sender: FDA-Public Use
  Company Number: PHRM2005FR01687

PATIENT
  Age: 76 Year
  Sex: Male
  Weight: 75 kg

DRUGS (4)
  1. GLEEVEC [Suspect]
     Indication: GASTROINTESTINAL STROMAL TUMOUR
     Dosage: 400 MG PER DAY
     Route: 048
     Dates: start: 20031007
  2. PLAVIX [Concomitant]
  3. GEMCITABINE [Concomitant]
     Indication: ADENOCARCINOMA PANCREAS
     Dosage: 3 COURSES
     Dates: start: 20030101
  4. OXALIPLATIN [Concomitant]
     Indication: ADENOCARCINOMA PANCREAS
     Dosage: 3 COURSES
     Dates: start: 20030101

REACTIONS (4)
  - HAEMATURIA [None]
  - TRANSURETHRAL BLADDER RESECTION [None]
  - URETERAL POLYP [None]
  - URETERIC CANCER [None]
